FAERS Safety Report 23581376 (Version 1)
Quarter: 2024Q1

REPORT INFORMATION
  Report Type: Spontaneous
  Country: US (occurrence: US)
  Receive Date: 20240229
  Receipt Date: 20240229
  Transmission Date: 20240409
  Serious: No
  Sender: FDA-Public Use
  Company Number: US-BAYER-2024A018928

PATIENT
  Age: 75 Year
  Sex: Male

DRUGS (1)
  1. ASTEPRO [Suspect]
     Active Substance: AZELASTINE HYDROCHLORIDE
     Indication: Rhinorrhoea
     Dosage: ONE SPRAY IN EACH NOSTRIL
     Route: 045
     Dates: start: 20240131, end: 20240131

REACTIONS (1)
  - Epistaxis [Recovered/Resolved]
